FAERS Safety Report 6840462-3 (Version None)
Quarter: 2010Q3

REPORT INFORMATION
  Report Type: 
  Country: None (occurrence: None)
  Receive Date: 20100709
  Receipt Date: 20100625
  Transmission Date: 20110219
  Serious: Yes (Death, Hospitalization)
  Sender: FDA-Public Use
  Company Number: 200601IM000083

PATIENT
  Age: 13 Year
  Sex: Male

DRUGS (2)
  1. INTERFERON GAMMA-1B [Suspect]
     Indication: CHRONIC GRANULOMATOUS DISEASE
     Dosage: TIW
     Route: 061
  2. TRIMETHOPRIM + SULFAMETHOXAZOLE [Concomitant]

REACTIONS (21)
  - CONJUNCTIVITIS [None]
  - DEMYELINATION [None]
  - DISEASE COMPLICATION [None]
  - ENCEPHALITIS POST MEASLES [None]
  - EYE PAIN [None]
  - GRAFT VERSUS HOST DISEASE [None]
  - HEADACHE [None]
  - LIVER ABSCESS [None]
  - LUMBAR PUNCTURE ABNORMAL [None]
  - NEUROLOGICAL DECOMPENSATION [None]
  - NEUTROPENIA [None]
  - NO THERAPEUTIC RESPONSE [None]
  - NUCLEAR MAGNETIC RESONANCE IMAGING BRAIN ABNORMAL [None]
  - PARTIAL SEIZURES [None]
  - PHOTOPHOBIA [None]
  - PYREXIA [None]
  - RASH ERYTHEMATOUS [None]
  - RASH PRURITIC [None]
  - STAPHYLOCOCCAL ABSCESS [None]
  - STATUS EPILEPTICUS [None]
  - TREATMENT NONCOMPLIANCE [None]
